FAERS Safety Report 7351855-2 (Version None)
Quarter: 2011Q1

REPORT INFORMATION
  Report Type: 
  Country: None (occurrence: None)
  Receive Date: 20110315
  Receipt Date: 20100723
  Transmission Date: 20110831
  Serious: Yes (Hospitalization)
  Sender: FDA-Public Use
  Company Number: US-BAYER-201018667NA

PATIENT
  Sex: Female
  Weight: 105.22 kg

DRUGS (14)
  1. YASMIN [Suspect]
     Indication: MENOMETRORRHAGIA
     Route: 048
  2. DARVOCET [Concomitant]
  3. MOTRIN [Concomitant]
  4. CLARINEX [Concomitant]
  5. CONTRACEPTIVES NOS [Concomitant]
  6. SYNTHROID [Concomitant]
  7. DEPO-PROVERA [Concomitant]
     Dosage: UNK
     Dates: start: 20061124, end: 20070108
  8. PROTONIX [Concomitant]
  9. YAZ [Suspect]
     Indication: MENOMETRORRHAGIA
     Dosage: UNK
     Route: 048
     Dates: start: 20070103, end: 20070130
  10. VICODIN [Concomitant]
  11. IBUPROFEN [Concomitant]
  12. ORTHO TRI-CYCLEN [Concomitant]
     Dosage: UNK
  13. IMITREX [Concomitant]
  14. XANAX [Concomitant]

REACTIONS (2)
  - PULMONARY EMBOLISM [None]
  - PAIN [None]
